FAERS Safety Report 25587834 (Version 1)
Quarter: 2025Q3

REPORT INFORMATION
  Report Type: Spontaneous
  Country: US (occurrence: US)
  Receive Date: 20250721
  Receipt Date: 20250721
  Transmission Date: 20251020
  Serious: Yes (Death, Life-Threatening, Hospitalization, Other)
  Sender: IOVANCE BIOTHERAPEUTICS
  Company Number: US-IOVANCE BIOTHERAPEUTICS, INC-2025IOV000121

PATIENT

DRUGS (7)
  1. AMTAGVI [Suspect]
     Active Substance: LIFILEUCEL
     Indication: Metastatic malignant melanoma
     Route: 042
     Dates: start: 20250519, end: 20250519
  2. ALDESLEUKIN [Suspect]
     Active Substance: ALDESLEUKIN
     Indication: Interleukin therapy
     Route: 042
     Dates: start: 20250519, end: 20250521
  3. CYCLOPHOSPHAMIDE [Suspect]
     Active Substance: CYCLOPHOSPHAMIDE
     Indication: Lymphodepletion
     Route: 042
  4. FLUDARABINE [Suspect]
     Active Substance: FLUDARABINE PHOSPHATE
     Indication: Lymphodepletion
     Route: 042
  5. ACYCLOVIR [Concomitant]
     Active Substance: ACYCLOVIR
  6. MEPRON [Concomitant]
     Active Substance: ATOVAQUONE
  7. FLUCONAZOLE [Concomitant]
     Active Substance: FLUCONAZOLE

REACTIONS (39)
  - Death [Fatal]
  - Shock [Unknown]
  - Multiple organ dysfunction syndrome [Unknown]
  - Disseminated intravascular coagulation [Unknown]
  - Back pain [Unknown]
  - Jaundice [Unknown]
  - Abdominal pain [Unknown]
  - Biliary dilatation [Unknown]
  - Splenomegaly [Unknown]
  - Lymphadenopathy [Unknown]
  - Liver function test increased [Unknown]
  - Chest discomfort [Unknown]
  - Oxygen saturation decreased [Unknown]
  - Pericardial effusion [Unknown]
  - Pulmonary mass [Unknown]
  - Pleural effusion [Unknown]
  - Malignant neoplasm progression [Unknown]
  - Abdominal discomfort [Unknown]
  - Liver function test increased [Unknown]
  - Blood lactic acid increased [Unknown]
  - Portal vein thrombosis [Unknown]
  - Hypoglycaemia [Unknown]
  - Leukocytosis [Unknown]
  - Pyrexia [Unknown]
  - Pneumonia [Unknown]
  - Ascites [Unknown]
  - Dyspnoea [Unknown]
  - Sinus tachycardia [Unknown]
  - Oliguria [Unknown]
  - Chills [Unknown]
  - Wheezing [Unknown]
  - Tachycardia [Unknown]
  - Chromaturia [Unknown]
  - Fatigue [Unknown]
  - Hypophagia [Unknown]
  - Dizziness [Unknown]
  - Nausea [Unknown]
  - Vomiting [Unknown]
  - Malaise [Unknown]

NARRATIVE: CASE EVENT DATE: 20250501
